FAERS Safety Report 9384423 (Version 1)
Quarter: 2013Q2

REPORT INFORMATION
  Report Type: Spontaneous
  Country: JP (occurrence: None)
  Receive Date: 20130628
  Receipt Date: 20130628
  Transmission Date: 20140414
  Serious: Yes (Hospitalization)
  Sender: FDA-Public Use
  Company Number: JP-012145

PATIENT
  Age: 60 Year
  Sex: Male

DRUGS (1)
  1. DEGARELIX [Suspect]
     Indication: PROSTATE CANCER
     Dosage: 240 MG 1X SC, (80 MG 1X/MONTH SC)
     Route: 058
     Dates: start: 201303, end: 201304

REACTIONS (5)
  - Injection site induration [None]
  - Injection site erythema [None]
  - Hypertension [None]
  - Blood glucose increased [None]
  - Injection site mass [None]
